FAERS Safety Report 6305505-4 (Version None)
Quarter: 2009Q3

REPORT INFORMATION
  Report Type: 
  Country: None (occurrence: None)
  Receive Date: 20090807
  Receipt Date: 20090722
  Transmission Date: 20100115
  Serious: Yes (Disabling)
  Sender: FDA-Public Use
  Company Number: 2009002217

PATIENT

DRUGS (2)
  1. ERLOTINIB (ERLOTINIB) (TABLET) (ERLOTINIB) [Suspect]
     Indication: COLORECTAL CANCER METASTATIC
     Dosage: ORAL
     Route: 048
     Dates: start: 20080125, end: 20090625
  2. BEVACIZUMAB (INJECTION FOR INFUSION) [Suspect]
     Indication: COLORECTAL CANCER METASTATIC
     Dosage: INTRAVENOUS
     Route: 042
     Dates: start: 20080125, end: 20090625

REACTIONS (4)
  - ACTIVITIES OF DAILY LIVING IMPAIRED [None]
  - ARTHRALGIA [None]
  - BACK PAIN [None]
  - MYALGIA [None]
